FAERS Safety Report 8578603 (Version 3)
Quarter: 2013Q1

REPORT INFORMATION
  Report Type: Spontaneous
  Country: US (occurrence: US)
  Receive Date: 20120524
  Receipt Date: 20130208
  Transmission Date: 20140127
  Serious: Yes (Hospitalization, Other)
  Sender: FDA-Public Use
  Company Number: US-ASTRAZENECA-2012SE31404

PATIENT
  Age: 54 Year
  Sex: Male
  Weight: 113.4 kg

DRUGS (5)
  1. SEROQUEL XR [Suspect]
     Indication: BIPOLAR DISORDER
     Route: 048
  2. SEROQUEL XR [Suspect]
     Indication: BIPOLAR I DISORDER
     Route: 048
  3. NEXIUM [Suspect]
     Route: 048
  4. CYMBALTA [Concomitant]
  5. CYMBALTA [Concomitant]

REACTIONS (4)
  - Femur fracture [Unknown]
  - Neoplasm malignant [Unknown]
  - Feeling abnormal [Unknown]
  - Drug dose omission [Unknown]
